FAERS Safety Report 12665867 (Version 1)
Quarter: 2016Q3

REPORT INFORMATION
  Report Type: Spontaneous
  Country: US (occurrence: US)
  Receive Date: 20160818
  Receipt Date: 20160818
  Transmission Date: 20161109
  Serious: Yes (Other)
  Sender: FDA-Public Use
  Company Number: US-BION-20160347

PATIENT
  Age: 56 Year
  Sex: Female

DRUGS (8)
  1. CHLORPHENIRAMINE. [Concomitant]
     Active Substance: CHLORPHENIRAMINE
  2. DOXYLAMINE [Concomitant]
     Active Substance: DOXYLAMINE
  3. DEXTROMETHORPHAN [Concomitant]
     Active Substance: DEXTROMETHORPHAN
  4. LOPRAMIDE HCL CAPSULES [Suspect]
     Active Substance: LOPERAMIDE HYDROCHLORIDE
     Route: 048
  5. OXYCODONE [Concomitant]
     Active Substance: OXYCODONE
  6. CITALOPRAM [Concomitant]
     Active Substance: CITALOPRAM HYDROBROMIDE
  7. PREGABALIN. [Concomitant]
     Active Substance: PREGABALIN
  8. DIPHENHYDRAMINE. [Concomitant]
     Active Substance: DIPHENHYDRAMINE

REACTIONS (4)
  - Dyspnoea [Unknown]
  - Cardio-respiratory arrest [None]
  - Metabolic acidosis [Unknown]
  - Drug abuse [Unknown]
